FAERS Safety Report 9363673 (Version 1)
Quarter: 2013Q2

REPORT INFORMATION
  Report Type: Spontaneous
  Country: US (occurrence: US)
  Receive Date: 20130624
  Receipt Date: 20130624
  Transmission Date: 20140414
  Serious: Yes (Other)
  Sender: FDA-Public Use
  Company Number: US-JNJFOC-20130609439

PATIENT
  Age: 7 Decade
  Sex: Female

DRUGS (1)
  1. KETOCONAZOLE 2% [Suspect]
     Indication: PRURITUS
     Route: 061
     Dates: start: 2012, end: 2012

REACTIONS (1)
  - Asthma [Not Recovered/Not Resolved]
